FAERS Safety Report 24692684 (Version 1)
Quarter: 2024Q4

REPORT INFORMATION
  Report Type: Spontaneous
  Country: CA (occurrence: CA)
  Receive Date: 20241203
  Receipt Date: 20241203
  Transmission Date: 20250114
  Serious: Yes (Other)
  Sender: PFIZER
  Company Number: CA-PFIZER INC-202400028004

PATIENT
  Age: 23 Year
  Sex: Female

DRUGS (2)
  1. METHOTREXATE SODIUM [Suspect]
     Active Substance: METHOTREXATE SODIUM
     Indication: Rheumatoid arthritis
     Dosage: 25 MG, WEEKLY
     Route: 058
     Dates: start: 2011
  2. ABRILADA [Concomitant]
     Active Substance: ADALIMUMAB-AFZB
     Indication: Juvenile idiopathic arthritis
     Dosage: 40 MG, WEEKLY (PREFILLED PEN)
     Route: 058
     Dates: start: 20240303

REACTIONS (6)
  - Intraocular lens implant [Unknown]
  - Off label use [Not Recovered/Not Resolved]
  - Drug ineffective [Unknown]
  - Eye inflammation [Recovered/Resolved]
  - Retinal pigmentation [Unknown]
  - Vitreous opacities [Recovered/Resolved]

NARRATIVE: CASE EVENT DATE: 20110101
